FAERS Safety Report 19222939 (Version 1)
Quarter: 2021Q2

REPORT INFORMATION
  Report Type: Spontaneous
  Country: US (occurrence: US)
  Receive Date: 20210505
  Receipt Date: 20210505
  Transmission Date: 20210717
  Serious: No
  Sender: FDA-Public Use
  Company Number: US-BEH-2021131094

PATIENT
  Age: 36 Year
  Sex: Female

DRUGS (1)
  1. HIZENTRA [Suspect]
     Active Substance: HUMAN IMMUNOGLOBULIN G
     Indication: IMMUNODEFICIENCY COMMON VARIABLE
     Dosage: 10 GRAM, QW
     Route: 058
     Dates: start: 20210203

REACTIONS (4)
  - Recalled product administered [Recovered/Resolved]
  - Injection site reaction [Recovered/Resolved]
  - Injection site pruritus [Recovered/Resolved]
  - Headache [Recovered/Resolved]
